FAERS Safety Report 10810214 (Version 1)
Quarter: 2015Q1

REPORT INFORMATION
  Report Type: Report from Study
  Country: US (occurrence: US)
  Receive Date: 20150217
  Receipt Date: 20150217
  Transmission Date: 20150721
  Serious: No
  Sender: FDA-Public Use
  Company Number: US-ABBVIE-14K-163-1268256-00

PATIENT
  Age: 48 Year
  Sex: Female

DRUGS (20)
  1. XANAX [Concomitant]
     Active Substance: ALPRAZOLAM
     Indication: ANXIETY
     Dosage: 3 TIMES DAILY AND ONE AS NEEDED
  2. CALCIUM [Concomitant]
     Active Substance: CALCIUM
     Indication: BLOOD ELECTROLYTES DECREASED
     Dosage: OVER THE COUNTER
  3. MAGNESIUM [Concomitant]
     Active Substance: MAGNESIUM
     Indication: BLOOD ELECTROLYTES DECREASED
     Dosage: OVER THE COUNTER
  4. HUMIRA [Suspect]
     Active Substance: ADALIMUMAB
     Indication: RHEUMATOID ARTHRITIS
     Dates: start: 20140713, end: 20140829
  5. DICLOFENAC SODIUM. [Concomitant]
     Active Substance: DICLOFENAC SODIUM
     Indication: MUSCLE RELAXANT THERAPY
  6. POTASSIUM [Concomitant]
     Active Substance: POTASSIUM
     Indication: BLOOD ELECTROLYTES DECREASED
     Dosage: OVER THE COUNTER
  7. CARISOPRODOL. [Concomitant]
     Active Substance: CARISOPRODOL
     Indication: MUSCLE RELAXANT THERAPY
  8. OXYCODONE [Concomitant]
     Active Substance: OXYCODONE
     Indication: PAIN MANAGEMENT
  9. ENALAPRIL [Concomitant]
     Active Substance: ENALAPRIL
     Indication: BLOOD PRESSURE
     Dosage: 10/25 MILIGRAM
  10. GABAPENTIN. [Concomitant]
     Active Substance: GABAPENTIN
     Indication: PAIN
     Dosage: THREE EVERY NIGHT
  11. PREDNISONE. [Concomitant]
     Active Substance: PREDNISONE
     Indication: RHEUMATOID ARTHRITIS
  12. ESTRADIOL. [Concomitant]
     Active Substance: ESTRADIOL
     Indication: HORMONE THERAPY
  13. LEVOTHYROXINE [Concomitant]
     Active Substance: LEVOTHYROXINE
     Indication: THYROID DISORDER
  14. CARISOPRODOL. [Concomitant]
     Active Substance: CARISOPRODOL
     Indication: MUSCLE RELAXANT THERAPY
  15. BIOTIN [Concomitant]
     Active Substance: BIOTIN
     Indication: ALOPECIA
  16. VITAMIN D3 [Concomitant]
     Active Substance: CHOLECALCIFEROL
     Indication: BLOOD ELECTROLYTES DECREASED
     Dosage: OVER THE COUNTER
  17. CYTOMEL [Concomitant]
     Active Substance: LIOTHYRONINE SODIUM
     Indication: AUTOIMMUNE DISORDER
  18. XANAX [Concomitant]
     Active Substance: ALPRAZOLAM
     Indication: PANIC ATTACK
  19. ESTRADIOL. [Concomitant]
     Active Substance: ESTRADIOL
     Indication: ALOPECIA
  20. LIOTHYRONINE [Concomitant]
     Active Substance: LIOTHYRONINE
     Indication: THYROID DISORDER

REACTIONS (33)
  - Insomnia [Not Recovered/Not Resolved]
  - Alopecia [Not Recovered/Not Resolved]
  - Drug ineffective [Not Recovered/Not Resolved]
  - Chest pain [Unknown]
  - Pain [Not Recovered/Not Resolved]
  - Eye disorder [Not Recovered/Not Resolved]
  - Feeling abnormal [Not Recovered/Not Resolved]
  - Weight increased [Not Recovered/Not Resolved]
  - Headache [Not Recovered/Not Resolved]
  - Mobility decreased [Not Recovered/Not Resolved]
  - Migraine [Not Recovered/Not Resolved]
  - Arthralgia [Not Recovered/Not Resolved]
  - Blood glucose abnormal [Unknown]
  - Lethargy [Not Recovered/Not Resolved]
  - Chest pain [Recovered/Resolved]
  - Dyspnoea [Not Recovered/Not Resolved]
  - Pain in extremity [Not Recovered/Not Resolved]
  - Hair texture abnormal [Unknown]
  - Fibromyalgia [Unknown]
  - Dehydration [Not Recovered/Not Resolved]
  - Rheumatoid arthritis [Not Recovered/Not Resolved]
  - Breast pain [Not Recovered/Not Resolved]
  - Breast tenderness [Not Recovered/Not Resolved]
  - Weight fluctuation [Not Recovered/Not Resolved]
  - Pruritus generalised [Not Recovered/Not Resolved]
  - Rash papular [Not Recovered/Not Resolved]
  - Breast swelling [Unknown]
  - Musculoskeletal pain [Not Recovered/Not Resolved]
  - Abdominal distension [Not Recovered/Not Resolved]
  - Muscular weakness [Not Recovered/Not Resolved]
  - Muscle spasms [Not Recovered/Not Resolved]
  - Rash pruritic [Not Recovered/Not Resolved]
  - Contusion [Not Recovered/Not Resolved]

NARRATIVE: CASE EVENT DATE: 2014
